FAERS Safety Report 5393911-4 (Version None)
Quarter: 2007Q3

REPORT INFORMATION
  Report Type: 
  Country: None (occurrence: None)
  Receive Date: 20070723
  Receipt Date: 20061101
  Transmission Date: 20080115
  Serious: No
  Sender: FDA-Public Use
  Company Number: A0625833A

PATIENT
  Age: 82 Year
  Sex: Male

DRUGS (6)
  1. AVANDIA [Suspect]
     Dosage: 4MG PER DAY
     Route: 048
     Dates: start: 20061025
  2. AMIODARONE HCL [Concomitant]
  3. LASIX [Concomitant]
  4. QUINAPRIL [Concomitant]
  5. WARFARIN SODIUM [Concomitant]
  6. NORVASC [Concomitant]

REACTIONS (1)
  - BLOOD GLUCOSE INCREASED [None]
